FAERS Safety Report 11633395 (Version 3)
Quarter: 2016Q4

REPORT INFORMATION
  Report Type: Report from Study
  Country: CA (occurrence: CA)
  Receive Date: 20151015
  Receipt Date: 20161117
  Transmission Date: 20170206
  Serious: Yes (Death)
  Sender: FDA-Public Use
  Company Number: PHHO2015CA015121

PATIENT
  Age: 90 Year
  Sex: Female

DRUGS (1)
  1. PLACEBO [Suspect]
     Active Substance: UNSPECIFIED INGREDIENT
     Indication: BREAST CANCER
     Dosage: UNK
     Route: 048
     Dates: start: 20060601

REACTIONS (1)
  - Death [Fatal]

NARRATIVE: CASE EVENT DATE: 20100123
